FAERS Safety Report 10881769 (Version 1)
Quarter: 2015Q1

REPORT INFORMATION
  Report Type: Spontaneous
  Country: US (occurrence: None)
  Receive Date: 20150226
  Receipt Date: 20150226
  Transmission Date: 20150721
  Serious: Yes (Hospitalization, Other)
  Sender: FDA-Public Use
  Company Number: None

PATIENT
  Age: 80 Year
  Sex: Female
  Weight: 43.09 kg

DRUGS (1)
  1. AMBIEN [Suspect]
     Active Substance: ZOLPIDEM TARTRATE
     Indication: SLEEP DISORDER
     Dosage: 5 MG 30, 1-AT ?, MOUTH
     Route: 048
     Dates: start: 2013, end: 2015

REACTIONS (2)
  - Panic reaction [None]
  - Anxiety [None]

NARRATIVE: CASE EVENT DATE: 20150117
